FAERS Safety Report 15005000 (Version 1)
Quarter: 2018Q2

REPORT INFORMATION
  Report Type: Spontaneous
  Country: US (occurrence: US)
  Receive Date: 20180613
  Receipt Date: 20180613
  Transmission Date: 20180711
  Serious: Yes (Other)
  Sender: FDA-Public Use
  Company Number: US-COVIS PHARMA B.V.-2017COV00818

PATIENT
  Age: 64 Year
  Sex: Male

DRUGS (11)
  1. BYSTOLIC [Concomitant]
     Active Substance: NEBIVOLOL HYDROCHLORIDE
  2. SYNTHROID [Concomitant]
     Active Substance: LEVOTHYROXINE SODIUM
  3. PRILOSEC [Suspect]
     Active Substance: OMEPRAZOLE MAGNESIUM
     Indication: GASTROOESOPHAGEAL REFLUX DISEASE
     Route: 048
  4. PRILOSEC OTC [Suspect]
     Active Substance: OMEPRAZOLE MAGNESIUM
     Route: 048
  5. ZYRTEC [Concomitant]
     Active Substance: CETIRIZINE HYDROCHLORIDE
  6. IMBRUVICA [Suspect]
     Active Substance: IBRUTINIB
     Indication: CHRONIC LYMPHOCYTIC LEUKAEMIA
     Dosage: 420 MG, 1X/DAY
     Route: 048
     Dates: start: 20141114
  7. IMBRUVICA [Suspect]
     Active Substance: IBRUTINIB
     Dosage: UNK
     Dates: start: 20161201
  8. NORVASC [Concomitant]
     Active Substance: AMLODIPINE BESYLATE
  9. FLUOCINONIDE. [Concomitant]
     Active Substance: FLUOCINONIDE
  10. ZINC. [Concomitant]
     Active Substance: ZINC
  11. PREDNISOLONE. [Concomitant]
     Active Substance: PREDNISOLONE

REACTIONS (13)
  - Musculoskeletal discomfort [Unknown]
  - Upper-airway cough syndrome [Unknown]
  - Gastrooesophageal reflux disease [Unknown]
  - Upper respiratory tract infection [Unknown]
  - Fungal skin infection [Unknown]
  - Sinusitis [Not Recovered/Not Resolved]
  - Eye irritation [Unknown]
  - Sinus disorder [Unknown]
  - Platelet count decreased [Unknown]
  - Nasopharyngitis [Unknown]
  - Dry mouth [Unknown]
  - Gingival pain [Not Recovered/Not Resolved]
  - Gingival erythema [Unknown]

NARRATIVE: CASE EVENT DATE: 201507
